FAERS Safety Report 10278061 (Version 3)
Quarter: 2014Q3

REPORT INFORMATION
  Report Type: Spontaneous
  Country: IE (occurrence: IE)
  Receive Date: 20140704
  Receipt Date: 20140828
  Transmission Date: 20150326
  Serious: No
  Sender: FDA-Public Use
  Company Number: IE-009507513-1407GBR000746

PATIENT
  Age: 65 Year
  Sex: Female

DRUGS (1)
  1. INEGY 10MG / 20MG TABLETS [Suspect]
     Active Substance: EZETIMIBE\SIMVASTATIN
     Indication: HYPERLIPIDAEMIA
     Dosage: UNK
     Route: 048
     Dates: start: 2007, end: 2014

REACTIONS (3)
  - Myalgia [Recovered/Resolved]
  - Blood cholesterol increased [Unknown]
  - Lower respiratory tract infection [Unknown]

NARRATIVE: CASE EVENT DATE: 2008
